FAERS Safety Report 21856058 (Version 1)
Quarter: 2023Q1

REPORT INFORMATION
  Report Type: Spontaneous
  Country: PL (occurrence: PL)
  Receive Date: 20230112
  Receipt Date: 20230112
  Transmission Date: 20230418
  Serious: Yes (Hospitalization, Other)
  Sender: FDA-Public Use
  Company Number: PL-002147023-NVSC2022PL260479

PATIENT
  Sex: Male

DRUGS (7)
  1. TACROLIMUS [Suspect]
     Active Substance: TACROLIMUS
     Indication: Product used for unknown indication
     Dosage: UNK
     Route: 065
     Dates: start: 2014
  2. PREDNISONE [Suspect]
     Active Substance: PREDNISONE
     Indication: Product used for unknown indication
     Dosage: UNK
     Route: 065
  3. SIROLIMUS [Suspect]
     Active Substance: SIROLIMUS
     Indication: Product used for unknown indication
     Dosage: UNK (3-7 NG/ML)
     Route: 065
     Dates: start: 2014, end: 20211221
  4. SULODEXIDE [Concomitant]
     Active Substance: SULODEXIDE
     Indication: Product used for unknown indication
     Dosage: UNK (INSTITUTED)
     Route: 042
  5. CELLCEPT [Concomitant]
     Active Substance: MYCOPHENOLATE MOFETIL
     Indication: Product used for unknown indication
     Dosage: 2 DOSAGE FORM
     Route: 065
     Dates: start: 20160115
  6. RUXOLITINIB [Concomitant]
     Active Substance: RUXOLITINIB
     Indication: Chronic graft versus host disease
     Dosage: UNK (5MG/10MG)
     Dates: start: 20211221
  7. RUXOLITINIB [Concomitant]
     Active Substance: RUXOLITINIB
     Dosage: 10 MG (2 X 5MG)
     Dates: start: 20220506

REACTIONS (23)
  - Nephropathy [Unknown]
  - Scleroderma [Unknown]
  - Pericarditis constrictive [Recovered/Resolved]
  - Hypogammaglobulinaemia [Unknown]
  - Ascites [Unknown]
  - Cardiac failure [Recovered/Resolved]
  - Acute kidney injury [Unknown]
  - Skin lesion [Unknown]
  - Inflammation [Unknown]
  - Balanoposthitis [Unknown]
  - Drug intolerance [Unknown]
  - Hypoalbuminaemia [Unknown]
  - Gastrointestinal disorder [Unknown]
  - Hepatomegaly [Unknown]
  - Antinuclear antibody increased [Unknown]
  - Weight decreased [Unknown]
  - Myalgia [Unknown]
  - Ulcer [Unknown]
  - Staphylococcal infection [Unknown]
  - Hypoproteinaemia [Unknown]
  - Protein total decreased [Unknown]
  - Oedema peripheral [Unknown]
  - Pleural effusion [Unknown]

NARRATIVE: CASE EVENT DATE: 20150101
